FAERS Safety Report 21804396 (Version 1)
Quarter: 2023Q1

REPORT INFORMATION
  Report Type: Spontaneous
  Country: IL (occurrence: IL)
  Receive Date: 20230102
  Receipt Date: 20230102
  Transmission Date: 20230417
  Serious: Yes (Other)
  Sender: FDA-Public Use
  Company Number: IL-SECURA BIO, INC.-2022-SECUR-IL000144

PATIENT

DRUGS (1)
  1. COPIKTRA [Suspect]
     Active Substance: DUVELISIB
     Indication: Chronic lymphocytic leukaemia
     Dosage: 25 MG, BID
     Route: 065

REACTIONS (4)
  - Chronic lymphocytic leukaemia [Unknown]
  - Neutropenia [Unknown]
  - Abdominal pain [Unknown]
  - Anaemia [Unknown]
